FAERS Safety Report 5992644-0 (Version None)
Quarter: 2008Q4

REPORT INFORMATION
  Report Type: 
  Country: None (occurrence: None)
  Receive Date: 20081211
  Receipt Date: 20080523
  Transmission Date: 20090506
  Serious: No
  Sender: FDA-Public Use
  Company Number: US-AMGEN-KDL281973

PATIENT
  Sex: Female

DRUGS (4)
  1. ENBREL [Suspect]
     Indication: PSORIASIS
     Dates: start: 20061001
  2. LISINOPRIL [Concomitant]
  3. METFORMIN HCL [Concomitant]
  4. MULTI-VITAMINS [Concomitant]

REACTIONS (2)
  - HEADACHE [None]
  - INSOMNIA [None]
